FAERS Safety Report 10133865 (Version 1)
Quarter: 2014Q2

REPORT INFORMATION
  Report Type: Spontaneous
  Country: BE (occurrence: BE)
  Receive Date: 20140428
  Receipt Date: 20140428
  Transmission Date: 20141212
  Serious: Yes (Hospitalization)
  Sender: FDA-Public Use
  Company Number: BE-MYLANLABS-2014S1009104

PATIENT
  Age: 61 Year
  Sex: Female

DRUGS (9)
  1. MANIPREX [Suspect]
     Indication: BIPOLAR DISORDER
     Route: 065
  2. VOLTAREN [Interacting]
     Indication: PROCEDURAL PAIN
     Dosage: 75MG; PROLONGED RELEASE
     Route: 065
  3. IBUPROFEN [Interacting]
     Indication: PROCEDURAL PAIN
     Route: 065
  4. SERTRALINE EG [Concomitant]
     Dosage: 100MG
     Route: 065
  5. ZYPREXA [Concomitant]
     Dosage: 2.5MG
     Route: 065
  6. TRAZODONE [Concomitant]
     Dosage: 100MG, TRAZODONE MYLAN
     Route: 065
  7. TEMESTA [Concomitant]
     Dosage: 2.5MG
     Route: 065
  8. FENOGAL LIDOSE [Concomitant]
     Dosage: 267MG
     Route: 065
  9. NOVOMIX [Concomitant]
     Route: 065

REACTIONS (7)
  - Toxicity to various agents [Recovering/Resolving]
  - Drug interaction [Recovering/Resolving]
  - Coma [Unknown]
  - Hypoglycaemia [Recovered/Resolved]
  - Renal failure acute [Recovered/Resolved]
  - Agitation [Unknown]
  - Hypercalcaemia [Recovered/Resolved]
